FAERS Safety Report 12989540 (Version 1)
Quarter: 2016Q4

REPORT INFORMATION
  Report Type: Spontaneous
  Country: FR (occurrence: FR)
  Receive Date: 20161201
  Receipt Date: 20161201
  Transmission Date: 20170207
  Serious: Yes (Other)
  Sender: FDA-Public Use
  Company Number: FR-ACCORD-044839

PATIENT
  Age: 52 Year
  Sex: Female

DRUGS (2)
  1. PACLITAXEL/PACLITAXEL LIPOSOME [Suspect]
     Active Substance: PACLITAXEL
     Indication: INVASIVE DUCTAL BREAST CARCINOMA
     Dates: start: 20160913
  2. DOCETAXEL ACCORD [Suspect]
     Active Substance: DOCETAXEL
     Indication: INVASIVE DUCTAL BREAST CARCINOMA
     Dosage: RECEIVED 156 MG FIRST COURSE TREATMENT.
     Route: 042
     Dates: start: 20160823, end: 20160823

REACTIONS (6)
  - Anaphylactoid reaction [Unknown]
  - Palmar-plantar erythrodysaesthesia syndrome [Recovered/Resolved]
  - Infusion related reaction [None]
  - Abasia [None]
  - Haemoglobin decreased [None]
  - Neutrophil count decreased [None]

NARRATIVE: CASE EVENT DATE: 201609
